FAERS Safety Report 6961748-8 (Version None)
Quarter: 2010Q3

REPORT INFORMATION
  Report Type: 
  Country: None (occurrence: None)
  Receive Date: 20100901
  Receipt Date: 20100823
  Transmission Date: 20110219
  Serious: Yes (Other)
  Sender: FDA-Public Use
  Company Number: PHHY2010BR56376

PATIENT
  Sex: Female

DRUGS (5)
  1. DIOVAN AMLO [Suspect]
     Dosage: 160/5 MG, UNK
  2. INDAPAMIDE [Concomitant]
     Dosage: 50 MG, UNK
  3. METHYLDOPA [Concomitant]
     Dosage: 500 MG, UNK
  4. LOSARTAN [Concomitant]
     Dosage: 100/25 MG, UNK
  5. TENCINA [Concomitant]
     Dosage: 150 MG, UNK

REACTIONS (3)
  - COAGULOPATHY [None]
  - DRUG INEFFECTIVE [None]
  - HYPERTENSION [None]
